FAERS Safety Report 22116239 (Version 1)
Quarter: 2023Q1

REPORT INFORMATION
  Report Type: Spontaneous
  Country: US (occurrence: US)
  Receive Date: 20230320
  Receipt Date: 20230320
  Transmission Date: 20230418
  Serious: No
  Sender: FDA-Public Use
  Company Number: US-PERRIGO-22US013410

PATIENT
  Age: 80 Year
  Sex: Male
  Weight: 96.145 kg

DRUGS (2)
  1. ACETAMINOPHEN [Suspect]
     Active Substance: ACETAMINOPHEN
     Indication: COVID-19
     Dosage: 650 MG TO 1300 MG, 3 TO 5 TIMES DAILY, PRN
     Route: 048
     Dates: end: 202110
  2. ACETAMINOPHEN [Suspect]
     Active Substance: ACETAMINOPHEN
     Indication: Arthritis
     Dosage: 650 MG, 3 TO 4 TIMES DAILY
     Route: 048
     Dates: start: 202110

REACTIONS (3)
  - Incorrect product administration duration [Unknown]
  - Underdose [Unknown]
  - Inappropriate schedule of product administration [Unknown]

NARRATIVE: CASE EVENT DATE: 20211001
